FAERS Safety Report 19930400 (Version 3)
Quarter: 2022Q2

REPORT INFORMATION
  Report Type: Report from Study
  Country: CN (occurrence: None)
  Receive Date: 20211007
  Receipt Date: 20220401
  Transmission Date: 20220721
  Serious: Yes (Hospitalization)
  Sender: FDA-Public Use
  Company Number: 2021A753996

PATIENT
  Age: 74 Year
  Sex: Male

DRUGS (16)
  1. DURVALUMAB [Suspect]
     Active Substance: DURVALUMAB
     Indication: Oesophageal squamous cell carcinoma
     Dosage: 1500.0 MG
     Route: 042
     Dates: start: 20210614, end: 20210614
  2. DURVALUMAB [Suspect]
     Active Substance: DURVALUMAB
     Indication: Oesophageal squamous cell carcinoma
     Dosage: 1500.0 MG
     Route: 042
     Dates: start: 20211007, end: 20211007
  3. DURVALUMAB [Suspect]
     Active Substance: DURVALUMAB
     Indication: Oesophageal squamous cell carcinoma
     Dosage: 1500.0 MG
     Route: 042
     Dates: start: 20211103, end: 20211103
  4. DURVALUMAB [Suspect]
     Active Substance: DURVALUMAB
     Indication: Oesophageal squamous cell carcinoma
     Dosage: 1500.0 MG
     Route: 042
     Dates: start: 20211201, end: 20211201
  5. CISPLATIN [Suspect]
     Active Substance: CISPLATIN
     Indication: Oesophageal squamous cell carcinoma
     Dosage: 30.0 MG/M2
     Route: 065
     Dates: start: 20210615, end: 20210615
  6. CISPLATIN [Suspect]
     Active Substance: CISPLATIN
     Indication: Oesophageal squamous cell carcinoma
     Dosage: 30.0 MG/M2
     Route: 065
     Dates: start: 20210701, end: 20210701
  7. CAPECITABINE [Suspect]
     Active Substance: CAPECITABINE
     Indication: Oesophageal squamous cell carcinoma
     Route: 065
     Dates: start: 20210615, end: 20210619
  8. CAPECITABINE [Suspect]
     Active Substance: CAPECITABINE
     Indication: Oesophageal squamous cell carcinoma
     Route: 065
     Dates: start: 20210701, end: 20210705
  9. FLUOROURACIL [Suspect]
     Active Substance: FLUOROURACIL
     Indication: Oesophageal squamous cell carcinoma
     Route: 065
  10. PLACENTA POLYPEJPTIDE INJECTION [Concomitant]
     Indication: Immunology test
     Dates: start: 20210601, end: 20210613
  11. GLYCERINE ENEMA [Concomitant]
     Indication: Constipation
     Dates: start: 20210602
  12. SODIUM CHLORIDE/AZASETRON HYDROCHLORIDE [Concomitant]
     Indication: Prophylaxis of nausea and vomiting
     Dates: start: 20210615, end: 20210621
  13. METOCLOPRAMIDE DIHYDROCHLORIDE INJECTION [Concomitant]
     Indication: Prophylaxis of nausea and vomiting
     Dates: start: 20210615, end: 20210615
  14. AMINO ACIDS, SOURCE UNSPECIFIED [Concomitant]
     Active Substance: AMINO ACIDS, SOURCE UNSPECIFIED
     Indication: Imprisonment
     Dates: start: 20210615, end: 20210615
  15. LIPOSYN (R) INTRAVENOUS FAT EMULSION [Concomitant]
     Active Substance: LIPOSYN (R) INTRAVENOUS FAT EMULSION
     Indication: Imprisonment
     Dates: start: 20210615, end: 20210621
  16. NESTLE JIA SHAN JIA LI CHANG [Concomitant]
     Indication: Nutritional supplementation
     Dates: start: 20210621

REACTIONS (1)
  - Platelet count decreased [Recovered/Resolved]

NARRATIVE: CASE EVENT DATE: 20210617
